FAERS Safety Report 7217874-1 (Version None)
Quarter: 2011Q1

REPORT INFORMATION
  Report Type: 
  Country: None (occurrence: None)
  Receive Date: 20110110
  Receipt Date: 20110105
  Transmission Date: 20110831
  Serious: Yes (Other)
  Sender: FDA-Public Use
  Company Number: US-BRISTOL-MYERS SQUIBB COMPANY-15473382

PATIENT
  Sex: Female

DRUGS (3)
  1. ORENCIA [Suspect]
  2. ADVIL [Concomitant]
  3. PREDNISONE [Concomitant]

REACTIONS (3)
  - GAIT DISTURBANCE [None]
  - ARTHRALGIA [None]
  - ANKLE FRACTURE [None]
